FAERS Safety Report 8266546-3 (Version None)
Quarter: 2012Q2

REPORT INFORMATION
  Report Type: 
  Country: None (occurrence: None)
  Receive Date: 20120406
  Receipt Date: 20120328
  Transmission Date: 20120825
  Serious: No
  Sender: FDA-Public Use
  Company Number: US-BAXTER-2012BAX001325

PATIENT
  Sex: Male

DRUGS (2)
  1. GAMMAGARD LIQUID [Suspect]
     Indication: PRIMARY IMMUNODEFICIENCY SYNDROME
     Route: 058
     Dates: start: 20080906
  2. GAMMAGARD LIQUID [Suspect]
     Route: 058
     Dates: start: 20120324

REACTIONS (5)
  - DISCOMFORT [None]
  - RASH [None]
  - DEAFNESS TRANSITORY [None]
  - TINNITUS [None]
  - SENSORY DISTURBANCE [None]
